FAERS Safety Report 11103830 (Version 2)
Quarter: 2015Q2

REPORT INFORMATION
  Report Type: Spontaneous
  Country: GB (occurrence: None)
  Receive Date: 20150507
  Receipt Date: 20150602
  Transmission Date: 20150821
  Serious: Yes (Disabling)
  Sender: FDA-Public Use
  Company Number: FK201502050

PATIENT
  Age: 67 Year
  Sex: Male

DRUGS (2)
  1. CEFUROXIME (CEFUROXIME) [Suspect]
     Active Substance: CEFUROXIME
     Indication: ANTIBIOTIC PROPHYLAXIS
     Dates: start: 20140813
  2. CEFUROXIME (CEFUROXIME) [Suspect]
     Active Substance: CEFUROXIME
     Indication: CATARACT
     Dates: start: 20140813

REACTIONS (2)
  - Retinal oedema [None]
  - Visual acuity reduced [None]

NARRATIVE: CASE EVENT DATE: 20140813
